FAERS Safety Report 10687457 (Version 4)
Quarter: 2015Q2

REPORT INFORMATION
  Report Type: Spontaneous
  Country: US (occurrence: US)
  Receive Date: 20150102
  Receipt Date: 20150612
  Transmission Date: 20150821
  Serious: Yes (Hospitalization)
  Sender: FDA-Public Use
  Company Number: US-BAYER-2014-191283

PATIENT
  Age: 22 Year
  Sex: Female
  Weight: 54.42 kg

DRUGS (2)
  1. MIRENA [Suspect]
     Active Substance: LEVONORGESTREL
     Indication: CONTRACEPTION
     Dosage: 20 MCG/24HR, CONT
     Route: 015
     Dates: start: 20110317, end: 20120421
  2. MICRONOR [Concomitant]
     Active Substance: NORETHINDRONE

REACTIONS (6)
  - Uterine perforation [None]
  - Injury [None]
  - Uterine scar [None]
  - Gastrointestinal injury [None]
  - Pain [None]
  - Device issue [None]

NARRATIVE: CASE EVENT DATE: 201103
